FAERS Safety Report 24940305 (Version 2)
Quarter: 2025Q2

REPORT INFORMATION
  Report Type: Spontaneous
  Country: US (occurrence: US)
  Receive Date: 20250207
  Receipt Date: 20250411
  Transmission Date: 20250717
  Serious: No
  Sender: LUPIN
  Company Number: US-LUPIN PHARMACEUTICALS INC.-2025-00194

PATIENT
  Age: 65 Year
  Weight: 66.213 kg

DRUGS (2)
  1. ALBUTEROL SULFATE [Suspect]
     Active Substance: ALBUTEROL SULFATE
     Indication: Hypersensitivity
     Dosage: UNK, TID (2 PUFFS IN THE MORNING AND NIGHT OR SOMETIMES 3 TIMES A DAY)
  2. ALBUTEROL SULFATE [Suspect]
     Active Substance: ALBUTEROL SULFATE
     Indication: Oropharyngeal pain
     Dosage: UNK, TID (2 PUFFS IN THE MORNING AND NIGHT OR SOMETIMES 3 TIMES A DAY.)

REACTIONS (2)
  - Wrong technique in product usage process [Unknown]
  - Off label use [Unknown]
